FAERS Safety Report 11934257 (Version 1)
Quarter: 2016Q1

REPORT INFORMATION
  Report Type: Spontaneous
  Country: US (occurrence: US)
  Receive Date: 20160121
  Receipt Date: 20160121
  Transmission Date: 20160526
  Serious: No
  Sender: FDA-Public Use
  Company Number: US-PERRIGO-15US003555

PATIENT
  Sex: Female

DRUGS (1)
  1. ACETAMINOPHEN\CAFFEINE\SALICYLATE [Suspect]
     Active Substance: ACETAMINOPHEN\CAFFEINE\SALICYLIC ACID
     Indication: MIGRAINE PROPHYLAXIS
     Dosage: UNKNOWN, UNKNOWN
     Route: 048
     Dates: start: 201503

REACTIONS (2)
  - Off label use [Unknown]
  - No adverse event [Recovered/Resolved]

NARRATIVE: CASE EVENT DATE: 201503
